FAERS Safety Report 5473893-7 (Version None)
Quarter: 2007Q3

REPORT INFORMATION
  Report Type: 
  Country: None (occurrence: None)
  Receive Date: 20070831
  Receipt Date: 20070619
  Transmission Date: 20080115
  Serious: No
  Sender: FDA-Public Use
  Company Number: 240869

PATIENT
  Age: 86 Year
  Sex: Female

DRUGS (5)
  1. LUCENTIS [Suspect]
     Indication: MACULAR DEGENERATION
     Dosage: INTRAVITREAL
     Dates: start: 20060701
  2. NORVASC [Concomitant]
  3. DIOVAN [Concomitant]
  4. PROPRANOLOL (PROPRANOLOL HYDROCHLORIDE) [Concomitant]
  5. SYNTHROID [Concomitant]

REACTIONS (1)
  - SINUSITIS [None]
